FAERS Safety Report 21323833 (Version 1)
Quarter: 2022Q3

REPORT INFORMATION
  Report Type: Report from Study
  Country: SE (occurrence: SE)
  Receive Date: 20220912
  Receipt Date: 20220912
  Transmission Date: 20221027
  Serious: Yes (Other)
  Sender: FDA-Public Use
  Company Number: SE-SUN PHARMACEUTICAL INDUSTRIES LTD-2022R1-354003

PATIENT
  Sex: Male

DRUGS (1)
  1. RISPERIDONE [Suspect]
     Active Substance: RISPERIDONE
     Indication: Neuronal ceroid lipofuscinosis
     Dosage: 0.25 MILLIGRAM, DAILY
     Route: 065

REACTIONS (2)
  - Rhabdomyolysis [Unknown]
  - Hyperthermia [Unknown]
